FAERS Safety Report 20739974 (Version 1)
Quarter: 2022Q2

REPORT INFORMATION
  Report Type: Spontaneous
  Country: US (occurrence: None)
  Receive Date: 20220422
  Receipt Date: 20220422
  Transmission Date: 20220720
  Serious: Yes (Disabling)
  Sender: FDA-Public Use
  Company Number: None

PATIENT
  Age: 82 Year
  Sex: Female
  Weight: 57.15 kg

DRUGS (25)
  1. REPATHA [Suspect]
     Active Substance: EVOLOCUMAB
     Indication: Blood cholesterol increased
     Dosage: FREQUENCY : EVERY OTHER WEEK;?
     Route: 058
     Dates: start: 20220220, end: 20220422
  2. BUDESONIDE [Concomitant]
     Active Substance: BUDESONIDE
  3. FORMOTEROL [Concomitant]
     Active Substance: FORMOTEROL
  4. COMBIVENT [Concomitant]
     Active Substance: ALBUTEROL SULFATE\IPRATROPIUM BROMIDE
  5. FAMOTIDINE [Concomitant]
     Active Substance: FAMOTIDINE
  6. FUROSEMIDE [Concomitant]
     Active Substance: FUROSEMIDE
  7. ISOSORBIDE [Concomitant]
     Active Substance: ISOSORBIDE
  8. LEVOTHYROXINE [Concomitant]
     Active Substance: LEVOTHYROXINE
  9. METOPROLOL [Concomitant]
     Active Substance: METOPROLOL
  10. MOMETASONE [Concomitant]
     Active Substance: MOMETASONE
  11. NITROGLYCERIN [Concomitant]
     Active Substance: NITROGLYCERIN
  12. OLMESARTAN [Concomitant]
     Active Substance: OLMESARTAN
  13. OXYBUTYNIN [Concomitant]
     Active Substance: OXYBUTYNIN
  14. PANTOPRAZOLE [Concomitant]
     Active Substance: PANTOPRAZOLE
  15. POTASSIUM CHLORIDE [Concomitant]
  16. PROCHLORPERAZINE [Concomitant]
     Active Substance: PROCHLORPERAZINE
  17. RANOLAZINE [Concomitant]
     Active Substance: RANOLAZINE
  18. SUCRALFATE [Concomitant]
     Active Substance: SUCRALFATE
  19. ASPIRIN [Concomitant]
     Active Substance: ASPIRIN
  20. VITAMIN D3 [Concomitant]
     Active Substance: CHOLECALCIFEROL
  21. UNSPECIFIED INGREDIENT [Concomitant]
     Active Substance: UNSPECIFIED INGREDIENT
  22. CALCIUM [Concomitant]
     Active Substance: CALCIUM
  23. ZYRTEC [Concomitant]
     Active Substance: CETIRIZINE HYDROCHLORIDE
  24. IRON [Concomitant]
     Active Substance: IRON
  25. MELATONIN [Concomitant]
     Active Substance: MELATONIN

REACTIONS (1)
  - Bursitis [None]

NARRATIVE: CASE EVENT DATE: 20220220
